FAERS Safety Report 5616112-0 (Version None)
Quarter: 2008Q1

REPORT INFORMATION
  Report Type: 
  Country: None (occurrence: None)
  Receive Date: 20080206
  Receipt Date: 20080130
  Transmission Date: 20080703
  Serious: Yes (Hospitalization, Other)
  Sender: FDA-Public Use
  Company Number: US-PFIZER INC-2008009302

PATIENT
  Sex: Female
  Weight: 61.2 kg

DRUGS (1)
  1. CELEBREX [Suspect]
     Indication: FIBROMYALGIA

REACTIONS (2)
  - CARDIOVASCULAR DISORDER [None]
  - EMBOLISM [None]
